FAERS Safety Report 14390110 (Version 5)
Quarter: 2018Q1

REPORT INFORMATION
  Report Type: Spontaneous
  Country: FR (occurrence: FR)
  Receive Date: 20180115
  Receipt Date: 20180124
  Transmission Date: 20180509
  Serious: Yes (Life-Threatening, Hospitalization, Other)
  Sender: FDA-Public Use
  Company Number: FR-ALEMBIC PHARMACUETICALS LIMITED-2018SCAL000007

PATIENT

DRUGS (1)
  1. LITHIUM CARBONATE. [Suspect]
     Active Substance: LITHIUM CARBONATE
     Indication: BIPOLAR DISORDER
     Dosage: 400 MG, BID
     Route: 065

REACTIONS (21)
  - Bone marrow failure [Recovering/Resolving]
  - Blood disorder [Recovering/Resolving]
  - Antipsychotic drug level above therapeutic [Recovering/Resolving]
  - Acute kidney injury [Recovered/Resolved]
  - Hypernatraemia [Recovered/Resolved]
  - Intentional overdose [Unknown]
  - Pancytopenia [Recovered/Resolved]
  - Nephrogenic diabetes insipidus [Unknown]
  - Quadriplegia [Recovering/Resolving]
  - Diffuse alopecia [Unknown]
  - Polyneuropathy [Unknown]
  - Altered state of consciousness [Recovering/Resolving]
  - Muscular weakness [Recovered/Resolved]
  - Hyporeflexia [Recovering/Resolving]
  - Polyuria [Not Recovered/Not Resolved]
  - Paraesthesia [Not Recovered/Not Resolved]
  - Nystagmus [Unknown]
  - Status epilepticus [Recovered/Resolved]
  - Cranial nerve disorder [Unknown]
  - Polydipsia [Not Recovered/Not Resolved]
  - Toxicity to various agents [Recovering/Resolving]
